FAERS Safety Report 8072202-7 (Version None)
Quarter: 2012Q1

REPORT INFORMATION
  Report Type: 
  Country: None (occurrence: None)
  Receive Date: 20120126
  Receipt Date: 20120120
  Transmission Date: 20120608
  Serious: No
  Sender: FDA-Public Use
  Company Number: US-PFIZER INC-2012017352

PATIENT
  Sex: Female
  Weight: 63.946 kg

DRUGS (1)
  1. TOVIAZ [Suspect]
     Indication: HYPERTONIC BLADDER
     Dosage: 4 MG, DAILY
     Dates: start: 20110101

REACTIONS (2)
  - DRY EYE [None]
  - FUNCTIONAL GASTROINTESTINAL DISORDER [None]
